FAERS Safety Report 7331977-2 (Version None)
Quarter: 2011Q1

REPORT INFORMATION
  Report Type: 
  Country: None (occurrence: None)
  Receive Date: 20110304
  Receipt Date: 20100625
  Transmission Date: 20110831
  Serious: Yes (Other)
  Sender: FDA-Public Use
  Company Number: US-PFIZER INC-2010034411

PATIENT
  Sex: Female

DRUGS (5)
  1. DILANTIN [Suspect]
     Dosage: 100 MG, EVERY 6 HRS
     Route: 042
     Dates: start: 20090301
  2. DILANTIN [Suspect]
     Dosage: 100 MG, 4X/DAY
     Route: 048
  3. DILANTIN [Suspect]
     Dosage: 300 MG, 3X/DAY
     Route: 042
  4. LABETALOL [Concomitant]
     Dosage: 200 MG, 3X/DAY
     Route: 048
  5. NORVASC [Concomitant]
     Dosage: 5 MG, 2X/DAY
     Route: 048

REACTIONS (1)
  - STEVENS-JOHNSON SYNDROME [None]
